FAERS Safety Report 5488578-0 (Version None)
Quarter: 2007Q4

REPORT INFORMATION
  Report Type: 
  Country: None (occurrence: None)
  Receive Date: 20071017
  Receipt Date: 20060911
  Transmission Date: 20080405
  Serious: No
  Sender: FDA-Public Use
  Company Number: A0619823A

PATIENT
  Age: 41 Year
  Sex: Female

DRUGS (3)
  1. CEFTIN [Suspect]
     Route: 065
     Dates: start: 20060817, end: 20060822
  2. LEXAPRO [Suspect]
     Indication: DEPRESSION
     Dosage: 5MG PER DAY
     Route: 048
     Dates: start: 20060822, end: 20060822
  3. NASAREL [Concomitant]

REACTIONS (4)
  - DYSPNOEA [None]
  - HYPERSENSITIVITY [None]
  - THROAT TIGHTNESS [None]
  - URTICARIA [None]
